FAERS Safety Report 25080730 (Version 3)
Quarter: 2025Q3

REPORT INFORMATION
  Report Type: Report from Study
  Country: US (occurrence: US)
  Receive Date: 20250315
  Receipt Date: 20250712
  Transmission Date: 20251021
  Serious: Yes (Other)
  Sender: ABBVIE
  Company Number: US-ABBVIE-6171814

PATIENT
  Age: 68 Year
  Sex: Female
  Weight: 65 kg

DRUGS (12)
  1. HUMIRA [Suspect]
     Active Substance: ADALIMUMAB
     Indication: Crohn^s disease
     Dosage: CITRATE FREE
     Route: 058
     Dates: start: 20130301
  2. HUMIRA [Suspect]
     Active Substance: ADALIMUMAB
     Indication: Psoriasis
     Route: 058
     Dates: start: 20160303
  3. LEVOTHYROXINE [Concomitant]
     Active Substance: LEVOTHYROXINE
     Indication: Hypothyroidism
  4. OZEMPIC [Concomitant]
     Active Substance: SEMAGLUTIDE
     Indication: Glucose tolerance impaired
     Dosage: INJECTION
  5. ROSUVASTATIN [Concomitant]
     Active Substance: ROSUVASTATIN
     Indication: Hypocholesterolaemia
     Dosage: TAKE HALF ONLY
  6. XIIDRA [Concomitant]
     Active Substance: LIFITEGRAST
     Indication: Dry eye
  7. RESTASIS [Concomitant]
     Active Substance: CYCLOSPORINE
     Indication: Dry eye
  8. LATANOPROST [Concomitant]
     Active Substance: LATANOPROST
     Indication: Glaucoma
  9. PROLIA [Concomitant]
     Active Substance: DENOSUMAB
     Indication: Osteoporosis
     Dosage: LAST INJECTION- 05 MAR 2025
  10. ESTRING [Concomitant]
     Active Substance: ESTRADIOL
     Indication: Product used for unknown indication
     Dosage: 7.5 MCG/DAY (2 MG) RING
  11. VITAMIN B12 [Concomitant]
     Active Substance: CYANOCOBALAMIN
     Indication: Product used for unknown indication
     Route: 060
  12. VITAMIN D3 [Concomitant]
     Active Substance: CHOLECALCIFEROL
     Indication: Product used for unknown indication

REACTIONS (4)
  - Meningioma [Not Recovered/Not Resolved]
  - Tinnitus [Not Recovered/Not Resolved]
  - Fatigue [Not Recovered/Not Resolved]
  - Sinus disorder [Recovered/Resolved]

NARRATIVE: CASE EVENT DATE: 20250201
